FAERS Safety Report 8446899-3 (Version None)
Quarter: 2012Q2

REPORT INFORMATION
  Report Type: 
  Country: None (occurrence: None)
  Receive Date: 20120612
  Receipt Date: 20120612
  Transmission Date: 20120825
  Serious: Yes (Hospitalization)
  Sender: FDA-Public Use
  Company Number: None

PATIENT
  Sex: Male
  Weight: 109 kg

DRUGS (6)
  1. PEG-L-ASPARAGINASE (K-H) [Suspect]
     Dosage: 5500 MG
  2. DAUNORUBICIN HCL [Suspect]
     Dosage: 70 MG
  3. METHYLPREDNISOLONE [Suspect]
     Dosage: 70 MG
  4. VINCRISTINE SULFATE [Suspect]
     Dosage: 8 MG
  5. CYTARABINE [Suspect]
     Dosage: 70 MG
  6. METHOTREXATE [Suspect]
     Dosage: 15 MG

REACTIONS (8)
  - NECROTISING FASCIITIS [None]
  - SEPTIC SHOCK [None]
  - FEBRILE NEUTROPENIA [None]
  - MUCOSAL INFLAMMATION [None]
  - BACTERIAL SEPSIS [None]
  - ACUTE RESPIRATORY DISTRESS SYNDROME [None]
  - PNEUMONIA [None]
  - FULL BLOOD COUNT DECREASED [None]
